FAERS Safety Report 9698038 (Version 1)
Quarter: 2013Q4

REPORT INFORMATION
  Report Type: Spontaneous
  Country: BR (occurrence: BR)
  Receive Date: 20131120
  Receipt Date: 20131120
  Transmission Date: 20140711
  Serious: Yes (Hospitalization, Other)
  Sender: FDA-Public Use
  Company Number: PHHY2013BR130767

PATIENT
  Age: 87 Year
  Sex: Male
  Weight: 60 kg

DRUGS (6)
  1. RAZAPINA [Suspect]
     Dosage: 30 MG, QD
     Route: 048
     Dates: start: 20131108
  2. DONAREN [Concomitant]
     Indication: DEMENTIA ALZHEIMER^S TYPE
     Dosage: UNK (1 TABLET AT NIGHT)
  3. ALOIS [Concomitant]
     Indication: DEMENTIA ALZHEIMER^S TYPE
     Dosage: UNK (1 TABLET PER DAY, SINCE 2 OR 3 YEARS AGO)
  4. RISPERIDON [Concomitant]
     Indication: AGITATION
     Dosage: 1 DF, UNK
  5. RISPERIDON [Concomitant]
     Indication: DEPRESSION
  6. RISPERIDON [Concomitant]
     Indication: ANXIETY

REACTIONS (5)
  - Muscle contractions involuntary [Unknown]
  - Influenza [Unknown]
  - Dehydration [Unknown]
  - Convulsion [Unknown]
  - Wrong technique in drug usage process [Unknown]
